FAERS Safety Report 5270231-X (Version None)
Quarter: 2007Q1

REPORT INFORMATION
  Report Type: 
  Country: None (occurrence: None)
  Receive Date: 20070320
  Receipt Date: 20070315
  Transmission Date: 20070707
  Serious: Yes (Death, Life-Threatening, Hospitalization)
  Sender: FDA-Public Use
  Company Number: DEWYE149017NOV05

PATIENT
  Sex: Male
  Weight: 83 kg

DRUGS (5)
  1. GEMTUZUMAB OZOGAMICIN [Suspect]
     Dosage: 12.18 MG
     Dates: start: 20051110
  2. ARA-C [Suspect]
     Dosage: 1435 MG CUMULATIVE DOSE
     Route: 042
     Dates: start: 20051122, end: 20051130
  3. ETOPOSIDE [Suspect]
     Dosage: 615 MG CUMULATIVE DOSE
     Route: 042
     Dates: start: 20051122, end: 20051124
  4. RAMIPRIL [Concomitant]
     Indication: HYPERTENSION
     Dosage: UNKNOWN
  5. NOVANTRONE [Suspect]
     Dosage: 28.7 MG CUMULATIVE DOSE
     Route: 042
     Dates: start: 20051126, end: 20051128

REACTIONS (2)
  - MYOCARDIAL INFARCTION [None]
  - SEPSIS [None]
